FAERS Safety Report 4838600-7 (Version None)
Quarter: 2005Q4

REPORT INFORMATION
  Report Type: 
  Country: None (occurrence: None)
  Receive Date: 20051123
  Receipt Date: 20051123
  Transmission Date: 20060501
  Serious: Yes (Death)
  Sender: FDA-Public Use
  Company Number: None

PATIENT
  Sex: Male
  Weight: 87 kg

DRUGS (2)
  1. ENOXAPARIN [Suspect]
     Indication: ATRIAL FIBRILLATION
     Dosage: 40MG   Q12H  SQ
     Route: 058
     Dates: start: 20050807, end: 20050816
  2. ENOXAPARIN [Suspect]
     Indication: POST PROCEDURAL COMPLICATION
     Dosage: 40MG   Q12H  SQ
     Route: 058
     Dates: start: 20050807, end: 20050816

REACTIONS (3)
  - CARDIAC ARREST [None]
  - HYPOTENSION [None]
  - INTRA-ABDOMINAL HAEMORRHAGE [None]
